FAERS Safety Report 7884320-4 (Version None)
Quarter: 2011Q4

REPORT INFORMATION
  Report Type: 
  Country: None (occurrence: None)
  Receive Date: 20111102
  Receipt Date: 20111027
  Transmission Date: 20120403
  Serious: Yes (Other)
  Sender: FDA-Public Use
  Company Number: RO-ROCHE-711070

PATIENT
  Sex: Female
  Weight: 67 kg

DRUGS (4)
  1. PEGINTERFERON ALFA-2A [Suspect]
     Dosage: 180
     Route: 058
  2. PEGINTERFERON ALFA-2A [Suspect]
     Indication: HEPATITIS C
     Dosage: DOSE: 180, UNIT AND FORM:NOT REPORTED
     Route: 058
     Dates: start: 20100212, end: 20100618
  3. COPEGUS [Suspect]
     Indication: HEPATITIS C
     Dosage: DOSE:1200 , FREQUENCY: DAILY, UNIT AND FORM :NOT REPORTED
     Route: 048
     Dates: start: 20100212, end: 20100618
  4. COPEGUS [Suspect]
     Dosage: DOSE:1200 , FREQUENCY: DAILY, UNIT AND FORM :NOT REPORTED
     Route: 048
     Dates: start: 20100701, end: 20100713

REACTIONS (1)
  - PHOTODERMATOSIS [None]
